FAERS Safety Report 7233889-1 (Version None)
Quarter: 2011Q1

REPORT INFORMATION
  Report Type: 
  Country: None (occurrence: None)
  Receive Date: 20110113
  Receipt Date: 20110113
  Transmission Date: 20110831
  Serious: Yes (Hospitalization)
  Sender: FDA-Public Use
  Company Number: None

PATIENT
  Age: 55 Year
  Sex: Male
  Weight: 93 kg

DRUGS (1)
  1. ROSUVASTATIN [Suspect]
     Indication: HYPERLIPIDAEMIA
     Dosage: 20 MG HS PO
     Route: 048
     Dates: start: 20090818, end: 20101211

REACTIONS (4)
  - RENAL FAILURE ACUTE [None]
  - DYSPNOEA EXERTIONAL [None]
  - RHABDOMYOLYSIS [None]
  - BLOOD PRESSURE DECREASED [None]
